FAERS Safety Report 23830474 (Version 1)
Quarter: 2024Q2

REPORT INFORMATION
  Report Type: Spontaneous
  Country: US (occurrence: US)
  Receive Date: 20240508
  Receipt Date: 20240508
  Transmission Date: 20240716
  Serious: No
  Sender: FDA-Public Use
  Company Number: US-BIOGEN-2019BI00801657

PATIENT
  Age: 14 Year
  Sex: Male

DRUGS (14)
  1. SPINRAZA [Suspect]
     Active Substance: NUSINERSEN
     Indication: Spinal muscular atrophy
     Route: 050
  2. SPINRAZA [Suspect]
     Active Substance: NUSINERSEN
     Dosage: LOADING DOSE
     Route: 050
  3. SPINRAZA [Suspect]
     Active Substance: NUSINERSEN
     Dosage: LOADING DOSE
     Route: 050
  4. SPINRAZA [Suspect]
     Active Substance: NUSINERSEN
     Dosage: LOADING DOSE
     Route: 050
  5. SPINRAZA [Suspect]
     Active Substance: NUSINERSEN
     Dosage: LOADING DOSE
     Route: 050
  6. SPINRAZA [Suspect]
     Active Substance: NUSINERSEN
     Dosage: MAINTENANCE DOSE
     Route: 050
  7. TYLENOL [Concomitant]
     Active Substance: ACETAMINOPHEN
     Indication: Pain
     Route: 050
     Dates: start: 20180929
  8. PROVENTIL [Concomitant]
     Active Substance: ALBUTEROL
     Indication: Wheezing
     Route: 050
     Dates: start: 20210930
  9. DULCOLAX [Concomitant]
     Indication: Product used for unknown indication
     Dosage: DAILY AS NEEDED
     Route: 050
     Dates: start: 20180211
  10. VITAMIN D3 [Concomitant]
     Active Substance: CHOLECALCIFEROL
     Indication: Product used for unknown indication
     Dosage: 12 REFILLS
     Route: 050
     Dates: start: 20200728
  11. ADVIL [Concomitant]
     Active Substance: IBUPROFEN
     Indication: Pain
     Dosage: 0 REFILLS
     Route: 050
     Dates: start: 20180929
  12. MIRALAX [Concomitant]
     Active Substance: POLYETHYLENE GLYCOL 3350
     Indication: Constipation
     Dosage: 0 REFILLS
     Route: 050
     Dates: start: 20180211
  13. PERICOLACE [Concomitant]
     Indication: Constipation
     Dosage: 8.6- 50 MG PER TABLET
     Route: 050
     Dates: start: 20180929
  14. SODIUM CHLORIDE 3% SOLUTION [Concomitant]
     Indication: Cough
     Dosage: 3 REFILLS
     Route: 050
     Dates: start: 20220912

REACTIONS (2)
  - Post lumbar puncture syndrome [Recovered/Resolved]
  - Therapeutic response shortened [Unknown]

NARRATIVE: CASE EVENT DATE: 20191025
